FAERS Safety Report 4476795-8 (Version None)
Quarter: 2004Q4

REPORT INFORMATION
  Report Type: 
  Country: None (occurrence: None)
  Receive Date: 20041013
  Receipt Date: 20010730
  Transmission Date: 20050328
  Serious: Yes (Other)
  Sender: FDA-Public Use
  Company Number: EM2001-1387

PATIENT

DRUGS (1)
  1. PROLEUKIN [Suspect]
     Indication: HIV INFECTION
     Dosage: INTRAVENOUS
     Route: 042

REACTIONS (1)
  - FACIAL PALSY [None]
